FAERS Safety Report 18541574 (Version 1)
Quarter: 2020Q4

REPORT INFORMATION
  Report Type: Other
  Country: HK (occurrence: HK)
  Receive Date: 20201124
  Receipt Date: 20201124
  Transmission Date: 20210114
  Serious: Yes (Death)
  Sender: FDA-Public Use
  Company Number: HK-DEXPHARM-20201060

PATIENT
  Sex: Female

DRUGS (8)
  1. PARACETAMOL NON DEXCEL PRODUCT [Suspect]
     Active Substance: ACETAMINOPHEN
  2. DEXAMETHASONE NON DEXCEL PRODUCT [Suspect]
     Active Substance: DEXAMETHASONE
  3. CHLORPHENIRAMINE. [Suspect]
     Active Substance: CHLORPHENIRAMINE
  4. HYDROCHLOROTHIAZIDE (HCTZ) NON DEXCEL PRODUCT [Suspect]
     Active Substance: HYDROCHLOROTHIAZIDE
  5. HYDROCORTISONE. [Concomitant]
     Active Substance: HYDROCORTISONE
  6. HEPARIN [Concomitant]
     Active Substance: HEPARIN SODIUM
  7. SYNACHTEN [Concomitant]
  8. DICLOFENAC NON DEXCEL PRODUCT [Suspect]
     Active Substance: DICLOFENAC

REACTIONS (1)
  - Abscess [Not Recovered/Not Resolved]
